FAERS Safety Report 14213820 (Version 2)
Quarter: 2018Q1

REPORT INFORMATION
  Report Type: Report from Study
  Country: None (occurrence: CA)
  Receive Date: 20171122
  Receipt Date: 20180210
  Transmission Date: 20180508
  Serious: Yes (Death, Hospitalization, Disabling)
  Sender: FDA-Public Use
  Company Number: CA-ABBVIE-17K-028-2167061-00

PATIENT
  Age: 55 Year
  Sex: Female
  Weight: 95.34 kg

DRUGS (3)
  1. METHOTREXATE. [Concomitant]
     Active Substance: METHOTREXATE
     Indication: RHEUMATOID ARTHRITIS
  2. PREDNISONE. [Concomitant]
     Active Substance: PREDNISONE
     Indication: RHEUMATOID ARTHRITIS
  3. HUMIRA [Suspect]
     Active Substance: ADALIMUMAB
     Indication: RHEUMATOID ARTHRITIS
     Route: 058
     Dates: start: 20050202, end: 201711

REACTIONS (10)
  - Loss of personal independence in daily activities [Unknown]
  - Memory impairment [Not Recovered/Not Resolved]
  - Frustration tolerance decreased [Not Recovered/Not Resolved]
  - Sepsis [Fatal]
  - Osteomyelitis [Unknown]
  - Spinal column stenosis [Fatal]
  - Spinal compression fracture [Fatal]
  - Intervertebral disc degeneration [Fatal]
  - Rheumatoid arthritis [Fatal]
  - Major depression [Not Recovered/Not Resolved]

NARRATIVE: CASE EVENT DATE: 201711
